FAERS Safety Report 6169965-4 (Version None)
Quarter: 2009Q2

REPORT INFORMATION
  Report Type: 
  Country: None (occurrence: None)
  Receive Date: 20090428
  Receipt Date: 20090413
  Transmission Date: 20091009
  Serious: Yes (Life-Threatening)
  Sender: FDA-Public Use
  Company Number: US-JNJFOC-20090403077

PATIENT
  Age: 30 Year
  Sex: Male

DRUGS (8)
  1. TRAMADOL HCL [Suspect]
     Route: 048
  2. TRAMADOL HCL [Suspect]
     Indication: MULTIPLE DRUG OVERDOSE
     Route: 048
  3. APAP TAB [Suspect]
     Route: 048
  4. APAP TAB [Suspect]
     Indication: MULTIPLE DRUG OVERDOSE
     Route: 048
  5. DIPHENHYDRAMINE HCL [Suspect]
     Indication: MULTIPLE DRUG OVERDOSE
     Dosage: DOSE- 2 BOTTLES
     Route: 048
  6. LISINOPRIL [Suspect]
     Route: 048
  7. LISINOPRIL [Suspect]
     Indication: MULTIPLE DRUG OVERDOSE
     Route: 048
  8. HYDROCHLOROTHIAZIDE [Concomitant]

REACTIONS (3)
  - HYPOTENSION [None]
  - MULTIPLE DRUG OVERDOSE [None]
  - SUICIDE ATTEMPT [None]
